FAERS Safety Report 12818091 (Version 3)
Quarter: 2017Q4

REPORT INFORMATION
  Report Type: Spontaneous
  Country: US (occurrence: US)
  Receive Date: 20161006
  Receipt Date: 20171220
  Transmission Date: 20180320
  Serious: Yes (Death)
  Sender: FDA-Public Use
  Company Number: US-PFIZER INC-2016312273

PATIENT
  Age: 67 Year
  Sex: Male
  Weight: 67.12 kg

DRUGS (18)
  1. LYRICA [Suspect]
     Active Substance: PREGABALIN
     Dosage: 150 MG, 2X/DAY
     Dates: start: 20160928
  2. VENTOLIN HFA [Concomitant]
     Active Substance: ALBUTEROL SULFATE
     Indication: DYSPNOEA
     Dosage: 90 UG, AS NEEDED
     Route: 048
  3. LYRICA [Suspect]
     Active Substance: PREGABALIN
     Dosage: 150 MG, 2X/DAY
  4. LYRICA [Suspect]
     Active Substance: PREGABALIN
     Indication: LUNG NEOPLASM MALIGNANT
     Dosage: 75 MG, 4X/DAY
  5. SOTALOL. [Concomitant]
     Active Substance: SOTALOL
     Indication: CARDIAC DISORDER
     Dosage: 80 MG, DAILY
     Route: 048
  6. AMLODIPINE [Concomitant]
     Active Substance: AMLODIPINE BESYLATE
     Indication: CARDIAC DISORDER
     Dosage: 5 MG, DAILY
     Route: 048
  7. METHYLPHENIDATE. [Concomitant]
     Active Substance: METHYLPHENIDATE
     Indication: SLEEP DISORDER
  8. LYRICA [Suspect]
     Active Substance: PREGABALIN
     Indication: LUNG DISORDER
     Dosage: 75 MG, 2X/DAY
     Route: 048
     Dates: start: 20160928
  9. LYRICA [Suspect]
     Active Substance: PREGABALIN
     Indication: NEURALGIA
     Dosage: 75 MG, 1X/DAY
  10. PANTOPRAZOLE [Concomitant]
     Active Substance: PANTOPRAZOLE
     Indication: ABDOMINAL DISCOMFORT
     Dosage: 40 MG, DAILY
     Route: 048
  11. FLUOXETINE [Concomitant]
     Active Substance: FLUOXETINE HYDROCHLORIDE
     Indication: DEPRESSION
     Dosage: 40 MG, DAILY
     Route: 048
  12. BREO ELLIPTA [Concomitant]
     Active Substance: FLUTICASONE FUROATE\VILANTEROL TRIFENATATE
     Indication: DYSPNOEA
     Dosage: DAILY, [FLUTICASONE FUROATE 100 MCG], [VILANTEROL TRIFENATATE 25 MCG]
     Route: 048
  13. ALPRAZOLAM. [Concomitant]
     Active Substance: ALPRAZOLAM
     Indication: ANXIETY
     Dosage: 0.5 MG, AS NEEDED (ONE TABLET BY MOUTH TWICE DAILY)
     Route: 048
  14. MORPHINE SULF [Concomitant]
     Active Substance: MORPHINE SULFATE
     Indication: PAIN
     Dosage: 60 MG, 1X/DAY
     Route: 048
  15. METHYLPHENIDATE. [Concomitant]
     Active Substance: METHYLPHENIDATE
     Indication: SOMNOLENCE
     Dosage: 5 MG, DAILY
     Route: 048
     Dates: start: 20160927
  16. TAMSULOSIN [Concomitant]
     Active Substance: TAMSULOSIN
     Indication: DYSURIA
     Dosage: 0.2 MG, 1X/DAY
     Route: 048
  17. MORPHINE SULF [Concomitant]
     Active Substance: MORPHINE SULFATE
     Dosage: 100 MG, 1X/DAY
     Route: 048
  18. OXYCODONE AND ACETAMINOPHEN [Concomitant]
     Active Substance: ACETAMINOPHEN\OXYCODONE HYDROCHLORIDE
     Indication: BREAKTHROUGH PAIN
     Dosage: AS NEEDED, [OXYCODONE HYDROCHLORIDE 10 MG], [PARACETAMOL 325 MG], ONE TO TWO TABLETS,EVERY 3-4 HOURS
     Route: 048
     Dates: start: 2016

REACTIONS (8)
  - Neoplasm malignant [Fatal]
  - Neuralgia [Not Recovered/Not Resolved]
  - Product use in unapproved indication [Unknown]
  - Intentional product misuse [Not Recovered/Not Resolved]
  - Condition aggravated [Unknown]
  - Somnolence [Not Recovered/Not Resolved]
  - Neoplasm progression [Unknown]
  - Dyspnoea [Not Recovered/Not Resolved]

NARRATIVE: CASE EVENT DATE: 2016
